FAERS Safety Report 6121498-7 (Version None)
Quarter: 2009Q1

REPORT INFORMATION
  Report Type: 
  Country: None (occurrence: None)
  Receive Date: 20090313
  Receipt Date: 20090313
  Transmission Date: 20090719
  Serious: Yes (Hospitalization)
  Sender: FDA-Public Use
  Company Number: None

PATIENT
  Age: 39 Year
  Sex: Female
  Weight: 81.6475 kg

DRUGS (1)
  1. ZOLPIDEM [Suspect]
     Indication: INSOMNIA
     Dosage: 10MG ONCE A DAY PO
     Route: 048
     Dates: start: 20090130, end: 20090214

REACTIONS (3)
  - CHEST PAIN [None]
  - DIZZINESS [None]
  - LOSS OF CONSCIOUSNESS [None]
